FAERS Safety Report 7685161-3 (Version None)
Quarter: 2011Q3

REPORT INFORMATION
  Report Type: 
  Country: None (occurrence: None)
  Receive Date: 20110816
  Receipt Date: 20110809
  Transmission Date: 20111222
  Serious: Yes (Death, Other)
  Sender: FDA-Public Use
  Company Number: JP-SANOFI-AVENTIS-2011SA049046

PATIENT
  Sex: Male

DRUGS (1)
  1. ALLEGRA [Suspect]
     Route: 048

REACTIONS (3)
  - ANAEMIA [None]
  - DEATH [None]
  - HEPATIC FUNCTION ABNORMAL [None]
